FAERS Safety Report 13523492 (Version 2)
Quarter: 2017Q4

REPORT INFORMATION
  Report Type: Spontaneous
  Country: US (occurrence: US)
  Receive Date: 20170508
  Receipt Date: 20171030
  Transmission Date: 20180320
  Serious: No
  Sender: FDA-Public Use
  Company Number: US-PFIZER INC-2017198395

PATIENT
  Age: 31 Year
  Sex: Male

DRUGS (1)
  1. XELJANZ XR [Suspect]
     Active Substance: TOFACITINIB CITRATE
     Dosage: 11 MG, 1X/DAY (QD)
     Route: 048

REACTIONS (3)
  - Swelling face [Unknown]
  - Condition aggravated [Unknown]
  - Drug ineffective [Unknown]
